FAERS Safety Report 4308613-2 (Version None)
Quarter: 2004Q1

REPORT INFORMATION
  Report Type: 
  Country: None (occurrence: None)
  Receive Date: 20040227
  Receipt Date: 20040217
  Transmission Date: 20041129
  Serious: Yes (Death, Hospitalization)
  Sender: FDA-Public Use
  Company Number: US-SHR-04-020322

PATIENT
  Age: 66 Year
  Sex: Male

DRUGS (6)
  1. BETASERON(INTERFERON BETA-1B)INJECTION, 250UG [Suspect]
     Indication: MULTIPLE SCLEROSIS
     Dosage: 0.3 MG, EVERY 2D, SUBCUTANEOUS
     Route: 058
     Dates: start: 20000101, end: 20040101
  2. BETASERON(INTERFERON BETA-1B)INJECTION, 250UG [Suspect]
     Indication: MULTIPLE SCLEROSIS
     Dosage: 0.3 MG, EVERY 2D, SUBCUTANEOUS
     Route: 058
     Dates: start: 19940101
  3. BACLOFEN [Concomitant]
  4. VALIUM /NET/(DIAZEPAM) [Concomitant]
  5. ... [Concomitant]
  6. NEURONTIN / UNK/ (GABAPENTIN) [Concomitant]

REACTIONS (4)
  - INTESTINAL HAEMORRHAGE [None]
  - PNEUMONIA [None]
  - SILENT MYOCARDIAL INFARCTION [None]
  - VOLUME BLOOD DECREASED [None]
